FAERS Safety Report 11921326 (Version 1)
Quarter: 2016Q1

REPORT INFORMATION
  Report Type: Spontaneous
  Country: US (occurrence: US)
  Receive Date: 20160115
  Receipt Date: 20160115
  Transmission Date: 20160526
  Serious: No
  Sender: FDA-Public Use
  Company Number: US-WATSON-2015-25939

PATIENT
  Age: 50 Year
  Sex: Female

DRUGS (2)
  1. NORETHINDRONE (ACTAVIS LABORATORIES UT) [Suspect]
     Active Substance: NORETHINDRONE
     Indication: HORMONE REPLACEMENT THERAPY
     Dosage: UNK, UNKNOWN
     Route: 065
     Dates: start: 20151001
  2. ESTRADIOL (WATSON LABORATORIES) [Suspect]
     Active Substance: ESTRADIOL
     Indication: HORMONE REPLACEMENT THERAPY
     Dosage: 0.5 MG, DAILY
     Route: 048
     Dates: start: 20151001

REACTIONS (2)
  - Gastrointestinal disorder [Not Recovered/Not Resolved]
  - Flatulence [Not Recovered/Not Resolved]

NARRATIVE: CASE EVENT DATE: 20151002
